FAERS Safety Report 17152362 (Version 1)
Quarter: 2019Q4

REPORT INFORMATION
  Report Type: Spontaneous
  Country: US (occurrence: US)
  Receive Date: 20191213
  Receipt Date: 20191213
  Transmission Date: 20200122
  Serious: Yes (Hospitalization)
  Sender: FDA-Public Use
  Company Number: US-ACTELION-A-US2019-199160

PATIENT
  Sex: Female
  Weight: 94.33 kg

DRUGS (4)
  1. VELETRI [Concomitant]
     Active Substance: EPOPROSTENOL
     Indication: PULMONARY ARTERIAL HYPERTENSION
     Dosage: 30 NG/KG, PER MIN
     Route: 042
  2. UPTRAVI [Suspect]
     Active Substance: SELEXIPAG
     Indication: PULMONARY ARTERIAL HYPERTENSION
     Dosage: 1600 MCG, BID
     Route: 048
  3. TADALAFIL. [Concomitant]
     Active Substance: TADALAFIL
  4. VELETRI [Concomitant]
     Active Substance: EPOPROSTENOL
     Dosage: 32 NG/KG, PER MIN
     Route: 042

REACTIONS (6)
  - Rhinovirus infection [Unknown]
  - Pyrexia [Unknown]
  - Emergency care [Unknown]
  - Exposure during pregnancy [Unknown]
  - Malaise [Unknown]
  - Pneumonia [Unknown]
